FAERS Safety Report 16940497 (Version 1)
Quarter: 2019Q4

REPORT INFORMATION
  Report Type: Report from Study
  Country: US (occurrence: US)
  Receive Date: 20191021
  Receipt Date: 20191021
  Transmission Date: 20200122
  Serious: Yes (Other)
  Sender: FDA-Public Use
  Company Number: US-ROCHE-2435443

PATIENT
  Age: 43 Year
  Sex: Female

DRUGS (1)
  1. OCREVUS [Suspect]
     Active Substance: OCRELIZUMAB
     Indication: RELAPSING-REMITTING MULTIPLE SCLEROSIS
     Route: 065
     Dates: start: 20171019

REACTIONS (6)
  - Hemiparesis [Not Recovered/Not Resolved]
  - Renal failure [Unknown]
  - Cerebellar stroke [Not Recovered/Not Resolved]
  - Rhabdomyolysis [Unknown]
  - Cerebrovascular accident [Not Recovered/Not Resolved]
  - Eye movement disorder [Unknown]

NARRATIVE: CASE EVENT DATE: 201907
